FAERS Safety Report 21396473 (Version 1)
Quarter: 2022Q3

REPORT INFORMATION
  Report Type: Spontaneous
  Country: RU (occurrence: RU)
  Receive Date: 20220930
  Receipt Date: 20220930
  Transmission Date: 20221026
  Serious: Yes (Other)
  Sender: FDA-Public Use
  Company Number: RU-R-PHARM US LLC-2022RPM00015

PATIENT
  Age: 65 Year
  Sex: Female
  Weight: 62 kg

DRUGS (2)
  1. IXEMPRA [Suspect]
     Active Substance: IXABEPILONE
     Dosage: 9 COURSES OF CT (IXABEPILONE + CAPECITABINE)
     Dates: start: 2021
  2. CAPECITABINE [Concomitant]
     Active Substance: CAPECITABINE
     Dosage: 9 COURSES OF CT (IXABEPILONE + CAPECITABINE)
     Dates: start: 2021

REACTIONS (5)
  - Metastases to bone [Unknown]
  - Metastases to spine [Unknown]
  - Metastases to lung [Unknown]
  - Neuropathy peripheral [Unknown]
  - Polyneuropathy [Unknown]

NARRATIVE: CASE EVENT DATE: 20210101
